FAERS Safety Report 8707163 (Version 2)
Quarter: 2012Q4

REPORT INFORMATION
  Report Type: 
  Country: IE (occurrence: IE)
  Receive Date: 20120803
  Receipt Date: 20120906
  Transmission Date: 20130627
  Serious: Yes (Other)
  Sender: FDA-Public Use
  Company Number: IE-PFIZER INC-2012138195

PATIENT
  Age: 33 Year
  Sex: Male

DRUGS (3)
  1. LYRICA [Suspect]
     Dosage: 150 mg, 3x/day
     Route: 048
  2. DIAZEPAM [Concomitant]
     Dosage: UNK
  3. METHADONE [Concomitant]
     Indication: DRUG DEPENDENCE
     Dosage: UNK

REACTIONS (3)
  - Drug dependence [Unknown]
  - Prescription form tampering [Unknown]
  - Treatment noncompliance [Unknown]
